FAERS Safety Report 6494353-0 (Version None)
Quarter: 2009Q4

REPORT INFORMATION
  Report Type: 
  Country: None (occurrence: None)
  Receive Date: 20091214
  Receipt Date: 20090211
  Transmission Date: 20100525
  Serious: No
  Sender: FDA-Public Use
  Company Number: US-BRISTOL-MYERS SQUIBB COMPANY-14502181

PATIENT
  Age: 9 Year
  Sex: Male
  Weight: 35 kg

DRUGS (1)
  1. ABILIFY [Suspect]
     Dosage: ABILIFY INCREASED 5 MG QD

REACTIONS (8)
  - AGGRESSION [None]
  - DEPRESSED LEVEL OF CONSCIOUSNESS [None]
  - DISTURBANCE IN ATTENTION [None]
  - EDUCATIONAL PROBLEM [None]
  - INCREASED APPETITE [None]
  - INSOMNIA [None]
  - OBESITY [None]
  - WEIGHT INCREASED [None]
